FAERS Safety Report 5271559-X (Version None)
Quarter: 2007Q1

REPORT INFORMATION
  Report Type: 
  Country: None (occurrence: None)
  Receive Date: 20070316
  Receipt Date: 20070302
  Transmission Date: 20070707
  Serious: Yes (Other)
  Sender: FDA-Public Use
  Company Number: 8022365

PATIENT
  Age: 36 Year
  Sex: Female

DRUGS (2)
  1. KEPPRA [Suspect]
  2. DEPAKOTE [Suspect]

REACTIONS (1)
  - PANCYTOPENIA [None]
